FAERS Safety Report 19556632 (Version 3)
Quarter: 2021Q3

REPORT INFORMATION
  Report Type: Spontaneous
  Country: FR (occurrence: FR)
  Receive Date: 20210715
  Receipt Date: 20210812
  Transmission Date: 20211014
  Serious: Yes (Other)
  Sender: FDA-Public Use
  Company Number: FR-GALDERMA-FR2021013970

PATIENT

DRUGS (1)
  1. CLOBEX [Suspect]
     Active Substance: CLOBETASOL PROPIONATE
     Indication: NEURODERMATITIS
     Dosage: 1 DOSAGE FORM
     Route: 061
     Dates: start: 20201118

REACTIONS (3)
  - Intentional product use issue [Recovered/Resolved]
  - Cataract [Unknown]
  - Uveitis [Unknown]

NARRATIVE: CASE EVENT DATE: 20201118
